FAERS Safety Report 16725599 (Version 3)
Quarter: 2019Q3

REPORT INFORMATION
  Report Type: Spontaneous
  Country: NO (occurrence: NO)
  Receive Date: 20190821
  Receipt Date: 20190924
  Transmission Date: 20191005
  Serious: Yes (Other)
  Sender: FDA-Public Use
  Company Number: PHHY2019NO193540

PATIENT
  Sex: Female

DRUGS (5)
  1. CARVEDILOL. [Concomitant]
     Active Substance: CARVEDILOL
     Indication: PRODUCT USED FOR UNKNOWN INDICATION
     Dosage: 6 MG, BID (MORNING AND NIGHT)
     Route: 065
     Dates: end: 20190813
  2. ATACAND [Concomitant]
     Active Substance: CANDESARTAN CILEXETIL
     Dosage: 2 MG, UNK
     Route: 065
     Dates: start: 20190815
  3. ATACAND [Concomitant]
     Active Substance: CANDESARTAN CILEXETIL
     Indication: PRODUCT USED FOR UNKNOWN INDICATION
     Dosage: 2 MG, UNK
     Route: 065
     Dates: end: 20190813
  4. LEVAXIN [Concomitant]
     Active Substance: LEVOTHYROXINE SODIUM
     Indication: METABOLIC DISORDER
     Dosage: 50 MG, QD (1 IN THE MORNING)
     Route: 065
  5. ENTRESTO [Suspect]
     Active Substance: SACUBITRIL\VALSARTAN
     Indication: CARDIAC FAILURE
     Dosage: 50 MG, BID (MORNING AND EVENING)
     Route: 065
     Dates: start: 20190814

REACTIONS (3)
  - Heart rate increased [Recovered/Resolved]
  - Pollakiuria [Recovered/Resolved]
  - Blood pressure increased [Recovered/Resolved]

NARRATIVE: CASE EVENT DATE: 20190814
